FAERS Safety Report 5488150-2 (Version None)
Quarter: 2007Q4

REPORT INFORMATION
  Report Type: 
  Country: None (occurrence: None)
  Receive Date: 20071001
  Receipt Date: 20060927
  Transmission Date: 20080405
  Serious: Yes (Hospitalization)
  Sender: FDA-Public Use
  Company Number: 200614350GDS

PATIENT
  Age: 90 Year
  Sex: Female
  Weight: 40 kg

DRUGS (1)
  1. CIPROFLOXACIN [Suspect]
     Indication: PROTEUS INFECTION
     Dosage: 1500 MG, TOTAL DAILY

REACTIONS (2)
  - CRYSTALLURIA [None]
  - RENAL FAILURE ACUTE [None]
